FAERS Safety Report 9048701 (Version 1)
Quarter: 2013Q1

REPORT INFORMATION
  Report Type: Spontaneous
  Country: US (occurrence: None)
  Receive Date: 20130130
  Receipt Date: 20130130
  Transmission Date: 20140127
  Serious: Yes (Hospitalization)
  Sender: FDA-Public Use
  Company Number: None

PATIENT
  Age: 61 Year
  Sex: Male
  Weight: 84.46 kg

DRUGS (2)
  1. IPILIMUMAB [Concomitant]
     Indication: MALIGNANT MELANOMA
     Dosage: Q 21 DAYS-4 CYCLES
     Route: 041
     Dates: start: 20121119, end: 20130107
  2. RADIATION -CYBERKNIFE [Concomitant]

REACTIONS (2)
  - Jaundice [None]
  - Bile duct obstruction [None]
